FAERS Safety Report 17420947 (Version 1)
Quarter: 2020Q1

REPORT INFORMATION
  Report Type: Spontaneous
  Country: US (occurrence: US)
  Receive Date: 20200214
  Receipt Date: 20200214
  Transmission Date: 20200409
  Serious: No
  Sender: FDA-Public Use
  Company Number: US-THERAPEUTICSMD-2019TMD04616

PATIENT
  Sex: Female
  Weight: 47.62 kg

DRUGS (1)
  1. BIJUVA [Suspect]
     Active Substance: ESTRADIOL\PROGESTERONE
     Indication: MENOPAUSAL SYMPTOMS
     Dosage: UNK
     Route: 048

REACTIONS (1)
  - Lip oedema [Recovered/Resolved]
